FAERS Safety Report 23044837 (Version 1)
Quarter: 2023Q4

REPORT INFORMATION
  Report Type: Spontaneous
  Country: US (occurrence: US)
  Receive Date: 20231009
  Receipt Date: 20231009
  Transmission Date: 20240110
  Serious: No
  Sender: FDA-Public Use
  Company Number: US-PFIZER INC-202300314591

PATIENT
  Sex: Female

DRUGS (1)
  1. NURTEC ODT [Suspect]
     Active Substance: RIMEGEPANT SULFATE
     Indication: Migraine
     Dosage: UNK (DECIDED TO TAKE IT SLOWLY)
     Dates: start: 202309

REACTIONS (7)
  - Arthropod bite [Unknown]
  - Rash macular [Unknown]
  - Urticaria [Unknown]
  - Hypersensitivity [Unknown]
  - Rash [Unknown]
  - Swelling [Unknown]
  - Intentional product misuse [Unknown]

NARRATIVE: CASE EVENT DATE: 20230901
